FAERS Safety Report 18979823 (Version 16)
Quarter: 2021Q3

REPORT INFORMATION
  Report Type: Report from Study
  Country: DK (occurrence: DK)
  Receive Date: 20210308
  Receipt Date: 20210803
  Transmission Date: 20211014
  Serious: Yes (Death, Hospitalization)
  Sender: FDA-Public Use
  Company Number: DK-EISAI MEDICAL RESEARCH-EC-2021-088386

PATIENT
  Age: 57 Year
  Sex: Female
  Weight: 58.5 kg

DRUGS (11)
  1. LOPERAMID [Concomitant]
     Active Substance: LOPERAMIDE
     Dates: start: 20210205, end: 20210209
  2. ACETAMINOPHEN. [Concomitant]
     Active Substance: ACETAMINOPHEN
     Dates: start: 20200720, end: 20210305
  3. FENTANYL. [Concomitant]
     Active Substance: FENTANYL
     Dates: start: 20200608, end: 20210224
  4. PREGABALIN. [Concomitant]
     Active Substance: PREGABALIN
     Dates: start: 20201210, end: 20210126
  5. LENVATINIB [Suspect]
     Active Substance: LENVATINIB
     Indication: SQUAMOUS CELL CARCINOMA OF HEAD AND NECK
     Route: 048
     Dates: start: 20210205, end: 20210205
  6. LACTULOSE. [Concomitant]
     Active Substance: LACTULOSE
     Dates: start: 20200910, end: 20210222
  7. LEVOTHYROXINE SODIUM. [Concomitant]
     Active Substance: LEVOTHYROXINE SODIUM
     Dates: start: 20200331, end: 20210503
  8. METHADONE HYDROCHLORIDE. [Concomitant]
     Active Substance: METHADONE HYDROCHLORIDE
     Dates: start: 20201223, end: 20210202
  9. DOMPERIDONE [Concomitant]
     Active Substance: DOMPERIDONE
     Dates: start: 20210205, end: 20210209
  10. PEMBROLIZUMAB. [Suspect]
     Active Substance: PEMBROLIZUMAB
     Indication: SQUAMOUS CELL CARCINOMA OF HEAD AND NECK
     Route: 041
     Dates: start: 20210205, end: 20210205
  11. SODIUM PICOSULFATE [Concomitant]
     Active Substance: SODIUM PICOSULFATE
     Dates: start: 20200826, end: 20210217

REACTIONS (3)
  - Oropharyngeal pain [Not Recovered/Not Resolved]
  - Facial pain [Not Recovered/Not Resolved]
  - Weight decreased [Recovering/Resolving]

NARRATIVE: CASE EVENT DATE: 20210208
